FAERS Safety Report 10053674 (Version 1)
Quarter: 2014Q2

REPORT INFORMATION
  Report Type: Spontaneous
  Country: US (occurrence: US)
  Receive Date: 20140402
  Receipt Date: 20140402
  Transmission Date: 20141212
  Serious: Yes (Death, Other)
  Sender: FDA-Public Use
  Company Number: US-BAXTER-2014BAX015804

PATIENT
  Age: 19 Year
  Sex: Male

DRUGS (12)
  1. CYCLOPHOSPHAMIDE FOR INJECTION, USP [Suspect]
     Indication: NEUROMYELITIS OPTICA
     Route: 065
  2. GAMMAGARD LIQUID [Suspect]
     Indication: NEUROMYELITIS OPTICA
     Route: 042
  3. GAMMAGARD LIQUID [Suspect]
     Indication: OFF LABEL USE
  4. RITUXIMAB [Suspect]
     Indication: NEUROMYELITIS OPTICA
     Route: 065
  5. RITUXIMAB [Suspect]
     Indication: IMMUNOSUPPRESSANT DRUG THERAPY
  6. PREDNISONE [Suspect]
     Indication: IMMUNOSUPPRESSANT DRUG THERAPY
     Route: 065
  7. BCNU [Suspect]
     Indication: IMMUNOSUPPRESSANT DRUG THERAPY
     Route: 065
  8. VP-16 [Suspect]
     Indication: IMMUNOSUPPRESSANT DRUG THERAPY
     Route: 065
  9. CYTARABINE [Suspect]
     Indication: IMMUNOSUPPRESSANT DRUG THERAPY
     Route: 065
  10. MELPHALAN [Suspect]
     Indication: IMMUNOSUPPRESSANT DRUG THERAPY
     Route: 065
  11. ANTITHYMOCYTE IMMUNOGLOBULIN [Suspect]
     Indication: IMMUNOSUPPRESSANT DRUG THERAPY
     Route: 065
  12. GRANULOCYTE COLONY-STIMULATING FACTOR NOS [Concomitant]
     Indication: PROPHYLAXIS
     Route: 065

REACTIONS (4)
  - Brain stem syndrome [Fatal]
  - Pulmonary alveolar haemorrhage [Unknown]
  - Condition aggravated [Unknown]
  - Immunoglobulins abnormal [Unknown]
